FAERS Safety Report 4606388-0 (Version None)
Quarter: 2005Q2

REPORT INFORMATION
  Report Type: 
  Country: None (occurrence: None)
  Receive Date: 20050223
  Receipt Date: 20041102
  Transmission Date: 20051028
  Serious: Yes (Life-Threatening, Hospitalization, Other)
  Sender: FDA-Public Use
  Company Number: WAES0411USA00396

PATIENT
  Age: 73 Year
  Sex: Female
  Weight: 68.9467 kg

DRUGS (6)
  1. ZOCOR [Suspect]
     Indication: CORONARY ARTERY DISEASE
     Dosage: 80 MG/DAILY/PO
     Route: 048
     Dates: start: 20040101, end: 20041028
  2. ALTACE [Concomitant]
  3. PLAVIX [Concomitant]
  4. PROTONIX [Concomitant]
  5. TOPROL-XL [Concomitant]
  6. THERAPY UNSPECIFIED [Concomitant]

REACTIONS (5)
  - ALANINE AMINOTRANSFERASE INCREASED [None]
  - ANXIETY [None]
  - ASPARTATE AMINOTRANSFERASE INCREASED [None]
  - RENAL FAILURE ACUTE [None]
  - RHABDOMYOLYSIS [None]
